FAERS Safety Report 4848357-1 (Version None)
Quarter: 2005Q4

REPORT INFORMATION
  Report Type: 
  Country: None (occurrence: None)
  Receive Date: 20051208
  Receipt Date: 20050628
  Transmission Date: 20060501
  Serious: Yes (Hospitalization)
  Sender: FDA-Public Use
  Company Number: US-MERCK-0506USA03930

PATIENT
  Age: 42 Year
  Sex: Male
  Weight: 89 kg

DRUGS (3)
  1. VIOXX [Suspect]
     Indication: ARTHRITIS
     Route: 048
     Dates: start: 20010701, end: 20040901
  2. VIOXX [Suspect]
     Indication: PAIN
     Route: 048
     Dates: start: 20010701, end: 20040901
  3. ADVIL [Concomitant]
     Route: 065

REACTIONS (3)
  - CARDIAC DISORDER [None]
  - GASTRIC DISORDER [None]
  - LOSS OF CONSCIOUSNESS [None]
